FAERS Safety Report 13855331 (Version 3)
Quarter: 2020Q3

REPORT INFORMATION
  Report Type: Spontaneous
  Country: US (occurrence: US)
  Receive Date: 20170810
  Receipt Date: 20200806
  Transmission Date: 20201102
  Serious: Yes (Hospitalization)
  Sender: FDA-Public Use
  Company Number: US-VIFOR (INTERNATIONAL) INC.-VIT-2017-04998

PATIENT
  Age: 71 Year
  Sex: Female
  Weight: 51.76 kg

DRUGS (15)
  1. WELLBUTRIN [Concomitant]
     Active Substance: BUPROPION HYDROCHLORIDE
  2. CHLORTHALIDONE. [Concomitant]
     Active Substance: CHLORTHALIDONE
  3. BENADRYL ALLERGY [Concomitant]
     Active Substance: DIPHENHYDRAMINE HYDROCHLORIDE
  4. VITAMIN D [Concomitant]
     Active Substance: VITAMIN D NOS
  5. PRILOSEC [Concomitant]
     Active Substance: OMEPRAZOLE MAGNESIUM
  6. ENALAPRIL MALEATE. [Concomitant]
     Active Substance: ENALAPRIL MALEATE
  7. CLARITIN [Concomitant]
     Active Substance: LORATADINE
  8. ZOCOR [Concomitant]
     Active Substance: SIMVASTATIN
  9. VITAMIN B12 [Concomitant]
     Active Substance: CYANOCOBALAMIN
  10. LASIX [Concomitant]
     Active Substance: FUROSEMIDE
  11. VELTASSA [Suspect]
     Active Substance: PATIROMER
     Indication: HYPERKALAEMIA
     Route: 048
     Dates: start: 20160517
  12. ATIVAN [Concomitant]
     Active Substance: LORAZEPAM
  13. TYLENOL [Concomitant]
     Active Substance: ACETAMINOPHEN
     Indication: ARTHRITIS
  14. MAGNESIUM CHLORIDE. [Concomitant]
     Active Substance: MAGNESIUM CHLORIDE
  15. VELTASSA [Suspect]
     Active Substance: PATIROMER
     Route: 048

REACTIONS (7)
  - Somnolence [Not Recovered/Not Resolved]
  - Diarrhoea [Unknown]
  - Asthenia [Not Recovered/Not Resolved]
  - Abdominal discomfort [Unknown]
  - Muscle tightness [Recovered/Resolved]
  - Nausea [Unknown]
  - Abdominal pain upper [Unknown]

NARRATIVE: CASE EVENT DATE: 20160517
